FAERS Safety Report 7478486-8 (Version None)
Quarter: 2011Q2

REPORT INFORMATION
  Report Type: 
  Country: None (occurrence: None)
  Receive Date: 20110513
  Receipt Date: 20110505
  Transmission Date: 20111010
  Serious: Yes (Death, Hospitalization)
  Sender: FDA-Public Use
  Company Number: FR-SANOFI-AVENTIS-2011SA022600

PATIENT
  Age: 41 Year
  Sex: Male

DRUGS (4)
  1. LOVENOX [Suspect]
     Indication: THROMBOSIS PROPHYLAXIS
     Route: 058
     Dates: start: 20090417, end: 20090417
  2. EFFERALGAN CODEINE [Concomitant]
     Indication: ANALGESIC THERAPY
     Dates: start: 20090401
  3. LOVENOX [Suspect]
     Route: 058
     Dates: start: 20090418, end: 20090422
  4. TEGRETOL [Concomitant]
     Indication: ANALGESIC THERAPY
     Route: 065
     Dates: start: 20090401, end: 20090401

REACTIONS (2)
  - THROMBOCYTOPENIA [None]
  - MENINGORRHAGIA [None]
